FAERS Safety Report 8975977 (Version 2)
Quarter: 2012Q4

REPORT INFORMATION
  Report Type: Report from Study
  Country: IT (occurrence: IT)
  Receive Date: 20121219
  Receipt Date: 20121227
  Transmission Date: 20130627
  Serious: Yes (Other)
  Sender: FDA-Public Use
  Company Number: IT-ACTELION-A-CH2012-76330

PATIENT
  Age: 10 Year
  Sex: Female
  Weight: 34 kg

DRUGS (3)
  1. ZAVESCA [Suspect]
     Indication: NIEMANN-PICK DISEASE
     Dosage: 100 mg, tid
     Route: 048
     Dates: start: 200811
  2. TRIHEXYPHENIDYL [Concomitant]
     Dosage: UNK
     Dates: start: 200906
  3. AMITRIPTYLINE [Concomitant]
     Dosage: UNK
     Dates: start: 200906, end: 201011

REACTIONS (1)
  - Convulsion [Not Recovered/Not Resolved]
